FAERS Safety Report 5424597-8 (Version None)
Quarter: 2007Q3

REPORT INFORMATION
  Report Type: 
  Country: None (occurrence: None)
  Receive Date: 20070824
  Receipt Date: 20070814
  Transmission Date: 20080115
  Serious: Yes (Hospitalization, Other)
  Sender: FDA-Public Use
  Company Number: US-ABBOTT-05P-163-0310333-00

PATIENT
  Sex: Female
  Weight: 79.45 kg

DRUGS (12)
  1. HUMIRA [Suspect]
     Indication: RHEUMATOID ARTHRITIS
     Route: 058
     Dates: start: 20030101, end: 20041201
  2. HUMIRA [Suspect]
     Route: 058
     Dates: end: 20070804
  3. MELOXICAM [Concomitant]
     Indication: DISCOMFORT
     Route: 048
     Dates: start: 20050801
  4. WARFARIN SODIUM [Concomitant]
     Indication: CARDIAC FIBRILLATION
     Dosage: MONDAY THRU FRIDAY
     Route: 048
     Dates: start: 20041201
  5. WARFARIN SODIUM [Concomitant]
     Dosage: REST OF WEEK
     Route: 048
     Dates: start: 20041201
  6. TREXOL [Concomitant]
     Indication: RHEUMATOID ARTHRITIS
     Route: 048
     Dates: start: 20040501
  7. CENTRUM [Concomitant]
     Indication: DRUG USE FOR UNKNOWN INDICATION
     Dosage: ONE
     Route: 048
  8. CALCIUM WITH VITAMIN D [Concomitant]
     Indication: DRUG USE FOR UNKNOWN INDICATION
     Dosage: ONE
     Route: 048
  9. TEMAZEPAM [Concomitant]
     Indication: DRUG USE FOR UNKNOWN INDICATION
     Dosage: AT NIGHT
     Route: 048
  10. CODORONE [Concomitant]
     Indication: DRUG USE FOR UNKNOWN INDICATION
     Route: 048
  11. TENEZEPAM [Concomitant]
     Indication: DRUG USE FOR UNKNOWN INDICATION
     Route: 048
  12. METHOTREXATE [Concomitant]
     Indication: DRUG USE FOR UNKNOWN INDICATION
     Route: 048

REACTIONS (8)
  - ARRHYTHMIA [None]
  - ARTHRALGIA [None]
  - ATRIAL FIBRILLATION [None]
  - BACTERIAL INFECTION [None]
  - DEHYDRATION [None]
  - DISLOCATION OF VERTEBRA [None]
  - HYPOAESTHESIA [None]
  - PYREXIA [None]
